FAERS Safety Report 4356817-5 (Version None)
Quarter: 2004Q2

REPORT INFORMATION
  Report Type: 
  Country: None (occurrence: None)
  Receive Date: 20040507
  Receipt Date: 20040422
  Transmission Date: 20050107
  Serious: Yes (Hospitalization, Other)
  Sender: FDA-Public Use
  Company Number: L04-JPN-01659-01

PATIENT
  Age: 70 Year
  Sex: Female

DRUGS (4)
  1. CARBAMAZEPINE [Suspect]
     Indication: PARTIAL SEIZURES
     Dosage: 400 MG QD PO
     Route: 048
     Dates: start: 19780101, end: 20020101
  2. CARBAMAZEPINE [Suspect]
     Indication: PARTIAL SEIZURES
     Dates: start: 20020101
  3. CARBAMAZEPINE [Suspect]
     Indication: PARTIAL SEIZURES
     Dates: end: 20030101
  4. VALPROATE [Concomitant]

REACTIONS (8)
  - DRUG EFFECT DECREASED [None]
  - DRUG INTERACTION INHIBITION [None]
  - FATIGUE [None]
  - NASOPHARYNGITIS [None]
  - POLYMYALGIA RHEUMATICA [None]
  - REFLEXES ABNORMAL [None]
  - TREATMENT NONCOMPLIANCE [None]
  - WHITE BLOOD CELL COUNT INCREASED [None]
